FAERS Safety Report 10510959 (Version 1)
Quarter: 2014Q4

REPORT INFORMATION
  Report Type: Report from Study
  Country: US (occurrence: US)
  Receive Date: 20141010
  Receipt Date: 20141010
  Transmission Date: 20150528
  Serious: Yes (Hospitalization)
  Sender: FDA-Public Use
  Company Number: US-BAYER-2014-148071

PATIENT
  Age: 51 Year
  Sex: Male

DRUGS (1)
  1. STIVARGA [Suspect]
     Active Substance: REGORAFENIB
     Indication: COLON CANCER
     Dosage: 160 MG DAILY FOR 3 WEEKS (40 MG TAB)
     Route: 048
     Dates: start: 20140217

REACTIONS (4)
  - Pneumonia [None]
  - Blister [None]
  - Palmar-plantar erythrodysaesthesia syndrome [None]
  - Skin exfoliation [None]

NARRATIVE: CASE EVENT DATE: 20140922
